FAERS Safety Report 5348309-1 (Version None)
Quarter: 2007Q2

REPORT INFORMATION
  Report Type: 
  Country: None (occurrence: None)
  Receive Date: 20070605
  Receipt Date: 20070521
  Transmission Date: 20071010
  Serious: Yes (Other)
  Sender: FDA-Public Use
  Company Number: 16589

PATIENT
  Sex: Female

DRUGS (9)
  1. CARBOPLATIN [Suspect]
     Indication: NON-SMALL CELL LUNG CANCER STAGE III
     Dosage: 6 AUC PER_CYCLE
  2. PACLITAXEL [Suspect]
     Indication: NON-SMALL CELL LUNG CANCER STAGE III
     Dosage: 175 MG/M2 PER_CYCLE IV
     Route: 042
  3. PACLITAXEL [Suspect]
     Indication: NON-SMALL CELL LUNG CANCER STAGE III
     Dosage: 60 MG/M2 WEEKLY IV
     Route: 042
  4. RADIATION THERAPY [Concomitant]
  5. DEXAMETHASONE 0.5MG TAB [Concomitant]
  6. CIMETIDINE HCL [Concomitant]
  7. DIPHENHYDRAMINE HCL [Concomitant]
  8. GRANISETRON [Concomitant]
  9. SODIUM CHLORIDE [Concomitant]

REACTIONS (2)
  - OESOPHAGEAL STENOSIS [None]
  - REFUSAL OF TREATMENT BY PATIENT [None]
